FAERS Safety Report 6348881-9 (Version None)
Quarter: 2009Q3

REPORT INFORMATION
  Report Type: 
  Country: None (occurrence: None)
  Receive Date: 20090911
  Receipt Date: 20090901
  Transmission Date: 20100115
  Serious: Yes (Hospitalization)
  Sender: FDA-Public Use
  Company Number: GB-PFIZER INC-2009262247

PATIENT

DRUGS (4)
  1. SULFASALAZINE [Suspect]
     Dosage: 1 G, UNK
     Route: 048
     Dates: end: 20090707
  2. FLUOXETINE [Concomitant]
     Dosage: 20 MG, UNK
     Route: 048
  3. SALBUTAMOL [Concomitant]
     Dosage: 2 DF, AS NEEDED
     Route: 055
  4. SERETIDE [Concomitant]
     Dosage: 2 DF, 2X/DAY
     Route: 055

REACTIONS (1)
  - INTERSTITIAL LUNG DISEASE [None]
